FAERS Safety Report 11645611 (Version 1)
Quarter: 2015Q4

REPORT INFORMATION
  Report Type: Spontaneous
  Country: US (occurrence: US)
  Receive Date: 20151020
  Receipt Date: 20151020
  Transmission Date: 20160304
  Serious: Yes (Hospitalization, Other)
  Sender: FDA-Public Use
  Company Number: US-EMD SERONO-8048110

PATIENT
  Age: 51 Year
  Sex: Female

DRUGS (5)
  1. AMPYRA [Suspect]
     Active Substance: DALFAMPRIDINE
     Indication: PRODUCT USED FOR UNKNOWN INDICATION
     Dates: start: 20140307, end: 20150615
  2. CALCIUM [Concomitant]
     Active Substance: CALCIUM
     Indication: PRODUCT USED FOR UNKNOWN INDICATION
     Dosage: WITH MEALS
  3. METOPROLOL SUCCINATE. [Concomitant]
     Active Substance: METOPROLOL SUCCINATE
     Indication: PRODUCT USED FOR UNKNOWN INDICATION
  4. FIBER [Concomitant]
     Active Substance: PSYLLIUM HUSK
     Indication: PRODUCT USED FOR UNKNOWN INDICATION
  5. REBIF [Suspect]
     Active Substance: INTERFERON BETA-1A
     Indication: RELAPSING-REMITTING MULTIPLE SCLEROSIS

REACTIONS (18)
  - Non-high-density lipoprotein cholesterol increased [Unknown]
  - Temporal lobe epilepsy [Recovered/Resolved]
  - Basophil count increased [Unknown]
  - Blood sodium decreased [Unknown]
  - Low density lipoprotein increased [Unknown]
  - Central nervous system lesion [Unknown]
  - Optic atrophy [Unknown]
  - Leukocytosis [Unknown]
  - Platelet count increased [Unknown]
  - Blood cholesterol increased [Unknown]
  - Gait disturbance [Unknown]
  - Muscular weakness [Unknown]
  - Peroneal nerve palsy [Unknown]
  - Sensory disturbance [Unknown]
  - Somnolence [Unknown]
  - Anticonvulsant drug level above therapeutic [Unknown]
  - High density lipoprotein abnormal [Unknown]
  - Liver function test abnormal [Unknown]

NARRATIVE: CASE EVENT DATE: 201506
